FAERS Safety Report 8699230 (Version 2)
Quarter: 2016Q4

REPORT INFORMATION
  Report Type: Spontaneous
  Country: BR (occurrence: BR)
  Receive Date: 20120802
  Receipt Date: 20161110
  Transmission Date: 20170207
  Serious: Yes (Death, Other)
  Sender: FDA-Public Use
  Company Number: PHHY2012BR065905

PATIENT
  Sex: Male
  Weight: 1.05 kg

DRUGS (3)
  1. LOSARTAN. [Suspect]
     Active Substance: LOSARTAN
     Indication: FOETAL EXPOSURE DURING PREGNANCY
     Dosage: 50 MG/DAY MATERNAL DOSE
     Route: 064
  2. METHYLDOPA. [Suspect]
     Active Substance: METHYLDOPA
     Indication: HYPERTENSION
     Route: 064
  3. BETAMETASONA [Suspect]
     Active Substance: BETAMETHASONE
     Indication: PRODUCT USED FOR UNKNOWN INDICATION
     Dosage: 12 MG, UNK
     Route: 064

REACTIONS (13)
  - Premature baby [Fatal]
  - Skull malformation [Unknown]
  - Thymus hypoplasia [Unknown]
  - Neonatal hypoxia [Unknown]
  - Craniofacial dysostosis [Unknown]
  - Ductus venosus agenesis [Unknown]
  - Cardiac arrest [Fatal]
  - Nephropathy [Fatal]
  - Extremity contracture [Unknown]
  - Foetal exposure during pregnancy [Unknown]
  - Renal aplasia [Fatal]
  - Pulmonary hypoplasia [Unknown]
  - Low birth weight baby [Unknown]
